FAERS Safety Report 5597413-1 (Version None)
Quarter: 2008Q1

REPORT INFORMATION
  Report Type: 
  Country: None (occurrence: None)
  Receive Date: 20080121
  Receipt Date: 20080108
  Transmission Date: 20080703
  Serious: Yes (Hospitalization)
  Sender: FDA-Public Use
  Company Number: GB-JNJFOC-20070903491

PATIENT
  Sex: Female
  Weight: 73.7 kg

DRUGS (7)
  1. DAKTARIN [Suspect]
     Route: 048
  2. DAKTARIN [Suspect]
     Indication: ORAL CANDIDIASIS
     Route: 048
  3. WARFARIN SODIUM [Interacting]
     Indication: THROMBOSIS
     Route: 065
  4. WARFARIN SODIUM [Interacting]
     Indication: POLYCYTHAEMIA
     Route: 065
  5. LANSOPRAZOLE [Concomitant]
     Indication: GASTROINTESTINAL DISORDER THERAPY
     Route: 065
  6. METFORMIN [Concomitant]
     Indication: DIABETES MELLITUS
     Route: 065
  7. REPAGLINIDE [Concomitant]
     Indication: DIABETES MELLITUS
     Route: 065

REACTIONS (5)
  - BLOOD URINE PRESENT [None]
  - COMPUTERISED TOMOGRAM ABNORMAL [None]
  - DRUG INTERACTION [None]
  - HAEMORRHAGE [None]
  - INTERNATIONAL NORMALISED RATIO INCREASED [None]
